FAERS Safety Report 7930529-0 (Version None)
Quarter: 2011Q4

REPORT INFORMATION
  Report Type: 
  Country: None (occurrence: None)
  Receive Date: 20111117
  Receipt Date: 20111104
  Transmission Date: 20120403
  Serious: Yes (Other)
  Sender: FDA-Public Use
  Company Number: EU-2011-10218

PATIENT
  Age: 55 Year
  Sex: Male
  Weight: 82 kg

DRUGS (12)
  1. BUTAZOLIDIN [Concomitant]
  2. PENTOXIFILIN (PENTOXYFILLINE) [Concomitant]
  3. OMEPRAZOL (OMEPRAZOL [Concomitant]
  4. FLUNITRAZEPAM (FLUNITRAZEPAM) [Concomitant]
  5. LORAZEPAM [Concomitant]
  6. DIAZEPAM [Concomitant]
  7. PLETAL [Suspect]
     Indication: INTERMITTENT CLAUDICATION
     Dosage: 100 MG  MILLIGRAM(S), DAILY DOSE, ORAL
     Route: 048
     Dates: start: 20110617, end: 20110622
  8. VENLAFAXIN (VENLAFAXINE HYDROCHLORIDE) [Concomitant]
  9. SIMVASTATINE (SIMVASTATINE) [Concomitant]
  10. GLICLAZIDA (GLICLAZIDE) [Concomitant]
  11. ASPIRIN [Concomitant]
  12. MIRTAZAPINA (MIRTAZAPINE) [Concomitant]

REACTIONS (2)
  - SINUS TACHYCARDIA [None]
  - DIABETES MELLITUS INADEQUATE CONTROL [None]
